FAERS Safety Report 9468439 (Version 1)
Quarter: 2013Q3

REPORT INFORMATION
  Report Type: Spontaneous
  Country: US (occurrence: US)
  Receive Date: 20130821
  Receipt Date: 20130821
  Transmission Date: 20140515
  Serious: No
  Sender: FDA-Public Use
  Company Number: US-PFIZER INC-2013239073

PATIENT
  Sex: Female

DRUGS (1)
  1. METHYLPREDNISOLONE [Suspect]
     Dosage: 4 MG
     Route: 048

REACTIONS (6)
  - Wrong technique in drug usage process [Unknown]
  - Wrong drug administered [Unknown]
  - Product quality issue [Unknown]
  - Oral disorder [Unknown]
  - Pharyngeal disorder [Unknown]
  - Dysphagia [Unknown]
